FAERS Safety Report 7612354-3 (Version None)
Quarter: 2011Q3

REPORT INFORMATION
  Report Type: 
  Country: None (occurrence: None)
  Receive Date: 20110715
  Receipt Date: 20110706
  Transmission Date: 20111222
  Serious: Yes (Hospitalization)
  Sender: FDA-Public Use
  Company Number: US-ASTRAZENECA-2011SE40543

PATIENT

DRUGS (1)
  1. ACCOLATE [Suspect]
     Route: 048

REACTIONS (4)
  - GOUT [None]
  - DIABETES MELLITUS [None]
  - SHOULDER OPERATION [None]
  - ILL-DEFINED DISORDER [None]
